FAERS Safety Report 16868237 (Version 1)
Quarter: 2019Q3

REPORT INFORMATION
  Report Type: Spontaneous
  Country: US (occurrence: US)
  Receive Date: 20190930
  Receipt Date: 20190930
  Transmission Date: 20191005
  Serious: No
  Sender: FDA-Public Use
  Company Number: US-PFIZER INC-2019416725

PATIENT
  Age: 82 Year

DRUGS (1)
  1. SULFASALAZINE. [Suspect]
     Active Substance: SULFASALAZINE
     Dosage: UNK

REACTIONS (4)
  - Arthralgia [Unknown]
  - Drug hypersensitivity [Unknown]
  - Tachycardia [Unknown]
  - Pyrexia [Unknown]
